FAERS Safety Report 12987743 (Version 1)
Quarter: 2016Q4

REPORT INFORMATION
  Report Type: Spontaneous
  Country: US (occurrence: US)
  Receive Date: 20161130
  Receipt Date: 20161130
  Transmission Date: 20170207
  Serious: No
  Sender: FDA-Public Use
  Company Number: None

PATIENT
  Age: 60 Year
  Sex: Female
  Weight: 49.9 kg

DRUGS (6)
  1. HYOSCYAMINE SULFATE. [Suspect]
     Active Substance: HYOSCYAMINE SULFATE
     Indication: ABDOMINAL PAIN UPPER
     Dosage: ?          QUANTITY:L EOFI^KFILIFIM^H;?
     Route: 048
     Dates: start: 201601, end: 201609
  2. SUCRALATE [Concomitant]
  3. DILTIAZEM. [Concomitant]
     Active Substance: DILTIAZEM
  4. VYTORIN [Concomitant]
     Active Substance: EZETIMIBE\SIMVASTATIN
  5. METOPROLOL. [Concomitant]
     Active Substance: METOPROLOL
  6. PROTESIX [Concomitant]

REACTIONS (8)
  - Nausea [None]
  - Hyperhidrosis [None]
  - Asthenia [None]
  - Heart rate increased [None]
  - Confusional state [None]
  - Weight decreased [None]
  - Decreased appetite [None]
  - Chest pain [None]

NARRATIVE: CASE EVENT DATE: 201603
